FAERS Safety Report 21118692 (Version 1)
Quarter: 2022Q3

REPORT INFORMATION
  Report Type: Other
  Country: PT (occurrence: PT)
  Receive Date: 20220722
  Receipt Date: 20220722
  Transmission Date: 20221027
  Serious: Yes (Other)
  Sender: FDA-Public Use
  Company Number: PT-CELLTRION INC.-2022PT011411

PATIENT

DRUGS (5)
  1. HERZUMA [Suspect]
     Active Substance: TRASTUZUMAB-PKRB
     Indication: Breast cancer
     Dates: start: 20220309
  2. PERTUZUMAB [Concomitant]
     Active Substance: PERTUZUMAB
     Dates: end: 20220601
  3. HYDROCHLOROTHIAZIDE\LOSARTAN [Concomitant]
     Active Substance: HYDROCHLOROTHIAZIDE\LOSARTAN
  4. PACLITAXEL [Concomitant]
     Active Substance: PACLITAXEL
     Dates: end: 20220511
  5. MEXAZOLAM [Concomitant]
     Active Substance: MEXAZOLAM

REACTIONS (3)
  - Neuralgia [Not Recovered/Not Resolved]
  - Hypomagnesaemia [Not Recovered/Not Resolved]
  - Paraesthesia [Not Recovered/Not Resolved]

NARRATIVE: CASE EVENT DATE: 20220419
